FAERS Safety Report 25220137 (Version 1)
Quarter: 2025Q2

REPORT INFORMATION
  Report Type: Spontaneous
  Country: FR (occurrence: FR)
  Receive Date: 20250421
  Receipt Date: 20250421
  Transmission Date: 20250716
  Serious: Yes (Hospitalization)
  Sender: FRESENIUS KABI
  Company Number: None

PATIENT
  Age: 13 Year
  Sex: Female
  Weight: 20.7 kg

DRUGS (2)
  1. TYENNE [Suspect]
     Active Substance: TOCILIZUMAB-AAZG
     Indication: Still^s disease
     Route: 042
     Dates: start: 20230116
  2. OMNITROPE [Suspect]
     Active Substance: SOMATROPIN
     Indication: Still^s disease
     Route: 058
     Dates: start: 20231115

REACTIONS (2)
  - Subacute pancreatitis [Not Recovered/Not Resolved]
  - Hypertriglyceridaemia [Not Recovered/Not Resolved]

NARRATIVE: CASE EVENT DATE: 20250301
